FAERS Safety Report 10241767 (Version 1)
Quarter: 2014Q1

REPORT INFORMATION
  Report Type: Spontaneous
  Country: US (occurrence: None)
  Receive Date: 20140306
  Receipt Date: 20140306
  Transmission Date: 20141002
  Serious: Yes (Other)
  Sender: FDA-Public Use
  Company Number: 163-21880-13124416

PATIENT
  Age: 62 Year
  Sex: Male
  Weight: 89.8 kg

DRUGS (5)
  1. REVLIMID (LENALIDOMIDE) (5 MILLIGRAM, CAPSULES) [Suspect]
     Route: 048
     Dates: start: 201211
  2. DEXAMETHASONE (TABLETS) [Concomitant]
  3. VITAMIN B 12 (TABLETS) [Concomitant]
  4. CALCIUM 600 + D (LEKOVIT CA) [Concomitant]
  5. OMEPRAZOLE (TABLETS) [Concomitant]

REACTIONS (1)
  - Thrombosis [None]
